FAERS Safety Report 15093190 (Version 2)
Quarter: 2019Q3

REPORT INFORMATION
  Report Type: Spontaneous
  Country: US (occurrence: US)
  Receive Date: 20180629
  Receipt Date: 20190807
  Transmission Date: 20191004
  Serious: Yes (Disabling, Other)
  Sender: FDA-Public Use
  Company Number: US-SUNOVION-2018SUN002571

PATIENT
  Age: 36 Year
  Sex: Female

DRUGS (1)
  1. LATUDA [Suspect]
     Active Substance: LURASIDONE HYDROCHLORIDE
     Indication: BIPOLAR DISORDER
     Dosage: 40 MG, QD
     Route: 048

REACTIONS (7)
  - Gait disturbance [Unknown]
  - Torticollis [Unknown]
  - Parkinsonism [Recovered/Resolved]
  - Akathisia [Unknown]
  - Dystonia [Unknown]
  - Dyskinesia [Unknown]
  - Tardive dyskinesia [Unknown]
